FAERS Safety Report 9010094 (Version 2)
Quarter: 2013Q1

REPORT INFORMATION
  Report Type: Spontaneous
  Country: US (occurrence: US)
  Receive Date: 20130110
  Receipt Date: 20130122
  Transmission Date: 20140127
  Serious: No
  Sender: FDA-Public Use
  Company Number: US-009507513-1301USA004420

PATIENT
  Age: 78 Year
  Sex: Female
  Weight: 90.7 kg

DRUGS (2)
  1. CLARITIN REDITABS [Suspect]
     Indication: EYE PRURITUS
     Dosage: 10 MG, ONCE
     Route: 048
     Dates: start: 20121222
  2. CLARITIN REDITABS [Suspect]
     Indication: NASAL DISCOMFORT

REACTIONS (2)
  - Dizziness [Unknown]
  - Somnolence [Recovered/Resolved]
